FAERS Safety Report 5089920-5 (Version None)
Quarter: 2006Q3

REPORT INFORMATION
  Report Type: 
  Country: None (occurrence: None)
  Receive Date: 20060828
  Receipt Date: 20051228
  Transmission Date: 20061208
  Serious: Yes (Hospitalization, Other)
  Sender: FDA-Public Use
  Company Number: PHEH2005US13896

PATIENT
  Age: 22 Year
  Sex: Female

DRUGS (13)
  1. ZELNORM [Suspect]
     Indication: ILEUS PARALYTIC
     Dosage: 6 MG, BID
     Route: 048
     Dates: start: 20051201
  2. ZELNORM [Suspect]
     Dosage: 6 MG QAM; 9 MG Q/HS
     Dates: end: 20060821
  3. ZELNORM [Suspect]
     Dosage: 6 MG, BID
     Route: 048
  4. ZELNORM [Suspect]
     Dates: start: 20050401, end: 20050918
  5. ZELNORM [Suspect]
     Dosage: 12 MG, TID
     Dates: start: 20050919, end: 20051201
  6. DILANTIN [Concomitant]
  7. KEPPRA [Concomitant]
  8. BACLOFEN [Concomitant]
  9. CALCIUM GLUCONATE [Concomitant]
  10. SENOKOT [Concomitant]
  11. LEVOTHYROXINE SODIUM [Concomitant]
  12. DOXEPIN [Concomitant]
  13. PREVACID [Concomitant]

REACTIONS (7)
  - ABDOMINAL PAIN [None]
  - AGGRESSION [None]
  - COMPUTERISED TOMOGRAM ABNORMAL [None]
  - GASTROSTOMY TUBE INSERTION [None]
  - ILEUS [None]
  - NAUSEA [None]
  - SURGERY [None]
